FAERS Safety Report 4715631-9 (Version None)
Quarter: 2005Q3

REPORT INFORMATION
  Report Type: 
  Country: None (occurrence: None)
  Receive Date: 20050713
  Receipt Date: 20050630
  Transmission Date: 20060218
  Serious: Yes (Hospitalization)
  Sender: FDA-Public Use
  Company Number: 2005089096

PATIENT
  Age: 66 Year
  Sex: Male

DRUGS (5)
  1. LIPITOR [Suspect]
     Indication: BLOOD CHOLESTEROL INCREASED
     Dosage: 20 MG (20 MG, 1 IN 1 D), ORAL
     Route: 048
  2. PHENYTOIN [Suspect]
     Indication: ILL-DEFINED DISORDER
     Dosage: ORAL
     Route: 048
     Dates: start: 20050601
  3. INDAPAMIDE [Concomitant]
  4. CLOPIDOGREL BISULFATE [Concomitant]
  5. PERINDOPRIL (PERINDOPRIL) [Concomitant]

REACTIONS (1)
  - MYALGIA [None]
